FAERS Safety Report 6960618-9 (Version None)
Quarter: 2010Q3

REPORT INFORMATION
  Report Type: 
  Country: None (occurrence: None)
  Receive Date: 20100901
  Receipt Date: 20100819
  Transmission Date: 20110219
  Serious: Yes (Hospitalization, Other)
  Sender: FDA-Public Use
  Company Number: US-ELI_LILLY_AND_COMPANY-US201008007271

PATIENT
  Sex: Female

DRUGS (3)
  1. FORTEO [Suspect]
     Indication: OSTEOPOROSIS
     Dosage: 20 UG, DAILY (1/D)
  2. ANTIBIOTICS [Concomitant]
  3. TORADOL [Concomitant]
     Indication: MIGRAINE

REACTIONS (14)
  - ARTHRALGIA [None]
  - ASTHENIA [None]
  - BACK PAIN [None]
  - CONSTIPATION [None]
  - DEHYDRATION [None]
  - DEPRESSION [None]
  - DIARRHOEA [None]
  - FALL [None]
  - HEPATITIS [None]
  - IMPAIRED HEALING [None]
  - LIVER DISORDER [None]
  - MIGRAINE [None]
  - NERVE INJURY [None]
  - VOMITING [None]
